FAERS Safety Report 5159497-4 (Version None)
Quarter: 2006Q4

REPORT INFORMATION
  Report Type: 
  Country: None (occurrence: None)
  Receive Date: 20061129
  Receipt Date: 20060706
  Transmission Date: 20070319
  Serious: Yes (Life-Threatening)
  Sender: FDA-Public Use
  Company Number: IT-BAYER-200612919GDS

PATIENT
  Age: 60 Year
  Sex: Male

DRUGS (3)
  1. LEVITRA [Suspect]
     Indication: ERECTILE DYSFUNCTION
     Dosage: UNIT DOSE: 20 MG
     Route: 048
     Dates: start: 20060501, end: 20060501
  2. LEVITRA [Suspect]
     Dosage: UNIT DOSE: 20 MG
     Route: 048
     Dates: start: 20060501, end: 20060501
  3. LEVITRA [Suspect]
     Dosage: UNIT DOSE: 10 MG
     Route: 048

REACTIONS (2)
  - DRUG INEFFECTIVE [None]
  - GRAND MAL CONVULSION [None]
